FAERS Safety Report 7496255-X (Version None)
Quarter: 2011Q2

REPORT INFORMATION
  Report Type: 
  Country: None (occurrence: None)
  Receive Date: 20110523
  Receipt Date: 20110519
  Transmission Date: 20111010
  Serious: Yes (Death, Other)
  Sender: FDA-Public Use
  Company Number: PHHY2010GB60748

PATIENT
  Age: 48 Year
  Sex: Male

DRUGS (2)
  1. LAMOTRIGINE [Concomitant]
     Dosage: UNK
  2. CLOZAPINE [Suspect]
     Dosage: 850 MG/DAY
     Route: 048

REACTIONS (7)
  - PULMONARY OEDEMA [None]
  - FAECALOMA [None]
  - GASTROINTESTINAL HYPOMOTILITY [None]
  - LEFT VENTRICULAR HYPERTROPHY [None]
  - CONSTIPATION [None]
  - ANTIPSYCHOTIC DRUG LEVEL INCREASED [None]
  - HYPERTENSION [None]
